FAERS Safety Report 22362823 (Version 1)
Quarter: 2023Q2

REPORT INFORMATION
  Report Type: Spontaneous
  Country: IL (occurrence: IL)
  Receive Date: 20230524
  Receipt Date: 20230524
  Transmission Date: 20230721
  Serious: Yes (Other)
  Sender: FDA-Public Use
  Company Number: IL-STRIDES ARCOLAB LIMITED-2023SP007488

PATIENT
  Age: 38 Year
  Sex: Male

DRUGS (8)
  1. ACYCLOVIR [Suspect]
     Active Substance: ACYCLOVIR
     Indication: Uveitis
     Dosage: 400 MILLIGRAM, FIVE TIMES DAILY
     Route: 048
  2. ACYCLOVIR [Suspect]
     Active Substance: ACYCLOVIR
     Indication: Herpes virus infection
     Dosage: UNK, DOSE TAPERED, THERAPY CONTINUED
     Route: 048
  3. DORZOLAMIDE\TIMOLOL [Suspect]
     Active Substance: DORZOLAMIDE\TIMOLOL
     Indication: Uveitis
     Dosage: UNK
     Route: 061
  4. DORZOLAMIDE\TIMOLOL [Suspect]
     Active Substance: DORZOLAMIDE\TIMOLOL
     Indication: Herpes virus infection
     Dosage: UNK, DOSE TAPERED, THERAPY CONTINUED
     Route: 061
  5. DEXAMETHASONE [Suspect]
     Active Substance: DEXAMETHASONE
     Indication: Uveitis
     Dosage: UNK
     Route: 061
  6. DEXAMETHASONE [Suspect]
     Active Substance: DEXAMETHASONE
     Indication: Herpes virus infection
     Dosage: UNK, DOSE TAPERED, THERAPY CONTINUED
     Route: 061
  7. PREDNISONE [Concomitant]
     Active Substance: PREDNISONE
     Indication: Uveitis
     Dosage: 60 MILLIGRAM, QD  (ONCE DAILY)
     Route: 048
  8. PREDNISONE [Concomitant]
     Active Substance: PREDNISONE
     Indication: Herpes virus infection
     Dosage: UNK, DOSE TAPERED, THERAPY CONTINUED
     Route: 048

REACTIONS (3)
  - Rebound effect [Recovered/Resolved]
  - Condition aggravated [Recovered/Resolved]
  - Off label use [Unknown]
